FAERS Safety Report 4674063-2 (Version None)
Quarter: 2005Q2

REPORT INFORMATION
  Report Type: 
  Country: None (occurrence: None)
  Receive Date: 20050525
  Receipt Date: 20050517
  Transmission Date: 20051028
  Serious: Yes (Other)
  Sender: FDA-Public Use
  Company Number: 200510497BVD

PATIENT
  Age: 43 Year

DRUGS (1)
  1. CIPROFLOXACIN [Suspect]
     Indication: CAMPYLOBACTER INFECTION
     Dosage: 500 MG, TOTAL DAILY, ORAL
     Route: 048

REACTIONS (2)
  - GUILLAIN-BARRE SYNDROME [None]
  - VITH NERVE PARALYSIS [None]
